FAERS Safety Report 10037496 (Version 3)
Quarter: 2014Q2

REPORT INFORMATION
  Report Type: Spontaneous
  Country: US (occurrence: None)
  Receive Date: 20140324
  Receipt Date: 20140507
  Transmission Date: 20141212
  Serious: Yes (Hospitalization)
  Sender: FDA-Public Use
  Company Number: 20140133

PATIENT
  Age: 56 Year
  Sex: Female

DRUGS (7)
  1. VENOFER [Suspect]
     Indication: PRODUCT USED FOR UNKNOWN INDICATION
     Route: 042
     Dates: start: 20131108, end: 20131115
  2. ROCEPHIN [Suspect]
     Indication: PRODUCT USED FOR UNKNOWN INDICATION
     Dates: start: 201311, end: 201311
  3. AZITHROMYCIN [Suspect]
     Indication: PRODUCT USED FOR UNKNOWN INDICATION
     Dates: start: 201311
  4. DILTIAZEM [Suspect]
     Indication: ATRIAL TACHYCARDIA
     Dates: start: 201311, end: 201311
  5. SOLUMEDROL (METHYLPREDNISOLONE SODIUM) [Concomitant]
  6. FLU VACCINE [Concomitant]
  7. PREDNISONE TAPER [Concomitant]

REACTIONS (4)
  - Stevens-Johnson syndrome [None]
  - Pruritus [None]
  - Poor venous access [None]
  - Rash [None]
